FAERS Safety Report 8136013-6 (Version None)
Quarter: 2012Q1

REPORT INFORMATION
  Report Type: 
  Country: None (occurrence: None)
  Receive Date: 20120214
  Receipt Date: 20120213
  Transmission Date: 20120608
  Serious: No
  Sender: FDA-Public Use
  Company Number: US-PFIZER INC-2012038970

PATIENT
  Sex: Female
  Weight: 77.098 kg

DRUGS (7)
  1. ZOLPIDEM [Concomitant]
     Indication: INSOMNIA
     Dosage: 10 MG, DAILY
  2. VENTOLIN [Concomitant]
     Indication: EMPHYSEMA
     Dosage: UNK, AS NEEDED
  3. CHANTIX [Suspect]
     Indication: SMOKING CESSATION THERAPY
     Dosage: 0.5 MG, DAILY
     Route: 048
     Dates: start: 20110101, end: 20111101
  4. LAMOTRIGINE [Suspect]
     Indication: DEPRESSION
     Dosage: 2 MG, DAILY
     Dates: start: 20111001, end: 20111001
  5. ABILIFY [Concomitant]
     Indication: BIPOLAR DISORDER
     Dosage: 30 MG, DAILY
  6. BUSPAR [Concomitant]
     Indication: ANXIETY
     Dosage: 100 MG, DAILY
  7. GABAPENTIN [Concomitant]
     Indication: DEPRESSION
     Dosage: 300 MG, DAILY

REACTIONS (8)
  - ANGER [None]
  - ABNORMAL DREAMS [None]
  - RASH [None]
  - ERYTHEMA [None]
  - VOMITING [None]
  - COUGH [None]
  - NAUSEA [None]
  - IRRITABILITY [None]
